FAERS Safety Report 9371886 (Version 4)
Quarter: 2013Q3

REPORT INFORMATION
  Report Type: Spontaneous
  Country: JP (occurrence: JP)
  Receive Date: 20130627
  Receipt Date: 20130709
  Transmission Date: 20140515
  Serious: Yes (Other)
  Sender: FDA-Public Use
  Company Number: JP-PFIZER INC-2013190265

PATIENT
  Age: 33 Year
  Sex: Female

DRUGS (2)
  1. LYRICA [Suspect]
     Indication: PAIN
     Dosage: 75 MG, 2X/DAY
     Route: 048
     Dates: start: 201305
  2. LYRICA [Interacting]
     Indication: HYPOAESTHESIA
     Dosage: 25 MG, UNK
     Route: 048
     Dates: start: 201306

REACTIONS (4)
  - Off label use [Unknown]
  - Oral disorder [Unknown]
  - Drug interaction [Unknown]
  - Drug ineffective [Unknown]
